FAERS Safety Report 9854572 (Version 1)
Quarter: 2014Q1

REPORT INFORMATION
  Report Type: Spontaneous
  Country: US (occurrence: US)
  Receive Date: 20140130
  Receipt Date: 20140130
  Transmission Date: 20141002
  Serious: No
  Sender: FDA-Public Use
  Company Number: US-BIOGENIDEC-2014BI007663

PATIENT
  Age: 21 Year
  Sex: Female

DRUGS (8)
  1. TECFIDERA [Suspect]
     Indication: MULTIPLE SCLEROSIS
     Route: 048
     Dates: start: 20140118
  2. NASONEX [Concomitant]
  3. PROAIR HFA [Concomitant]
  4. SEROQUEL [Concomitant]
  5. WELLBUTRIN XL [Concomitant]
  6. SINGULAIR [Concomitant]
  7. ADVAIR [Concomitant]
  8. SEROQUEL [Concomitant]

REACTIONS (2)
  - Intentional overdose [Unknown]
  - Headache [Unknown]
